FAERS Safety Report 14847827 (Version 1)
Quarter: 2018Q2

REPORT INFORMATION
  Report Type: Spontaneous
  Country: US (occurrence: US)
  Receive Date: 20180504
  Receipt Date: 20180504
  Transmission Date: 20180711
  Serious: Yes (Death, Other)
  Sender: FDA-Public Use
  Company Number: US-JNJFOC-20180503321

PATIENT
  Sex: Female

DRUGS (1)
  1. YONDELIS [Suspect]
     Active Substance: TRABECTEDIN
     Indication: UTERINE LEIOMYOSARCOMA
     Route: 042

REACTIONS (2)
  - Death [Fatal]
  - Uterine leiomyosarcoma [Unknown]
